FAERS Safety Report 7416223-3 (Version None)
Quarter: 2011Q2

REPORT INFORMATION
  Report Type: 
  Country: None (occurrence: None)
  Receive Date: 20110414
  Receipt Date: 20110401
  Transmission Date: 20111010
  Serious: Yes (Hospitalization)
  Sender: FDA-Public Use
  Company Number: CA-JNJFOC-20110402062

PATIENT
  Sex: Male
  Weight: 95.8 kg

DRUGS (4)
  1. QUININE SULFATE [Concomitant]
     Route: 065
  2. REMICADE [Suspect]
     Indication: PSORIATIC ARTHROPATHY
     Route: 042
  3. METHOTREXATE [Concomitant]
     Route: 065
  4. CILAZAPRIL [Concomitant]
     Route: 065

REACTIONS (1)
  - HERNIA [None]
